FAERS Safety Report 6334318-2 (Version None)
Quarter: 2009Q3

REPORT INFORMATION
  Report Type: 
  Country: None (occurrence: None)
  Receive Date: 20090829
  Receipt Date: 20090811
  Transmission Date: 20100115
  Serious: No
  Sender: FDA-Public Use
  Company Number: US-ABBOTT-09P-163-0590426-00

PATIENT
  Sex: Male
  Weight: 85.352 kg

DRUGS (5)
  1. SIMCOR [Suspect]
     Indication: LOW DENSITY LIPOPROTEIN INCREASED
     Dosage: 500MG/20MG DAILY
     Dates: start: 20090404, end: 20090601
  2. SIMCOR [Suspect]
     Dosage: 750MG/20MG DAILY
     Dates: start: 20090601, end: 20090601
  3. SIMCOR [Suspect]
     Dosage: 1000MG/20MG DAILY
     Dates: start: 20090701, end: 20090721
  4. COREG [Concomitant]
     Indication: DRUG USE FOR UNKNOWN INDICATION
  5. ATACAND [Concomitant]
     Indication: HYPERTENSION

REACTIONS (1)
  - BACK PAIN [None]
